FAERS Safety Report 15112435 (Version 1)
Quarter: 2018Q3

REPORT INFORMATION
  Report Type: Report from Study
  Country: US (occurrence: US)
  Receive Date: 20180705
  Receipt Date: 20180705
  Transmission Date: 20181010
  Serious: Yes (Other)
  Sender: FDA-Public Use
  Company Number: US-BAYER-2018-123968

PATIENT
  Age: 52 Year
  Sex: Female

DRUGS (4)
  1. IBUPROFEN. [Concomitant]
     Active Substance: IBUPROFEN
  2. ENSURE [AMINO ACIDS NOS,MINERALS NOS,VITAMINS NOS] [Concomitant]
  3. STIVARGA [Suspect]
     Active Substance: REGORAFENIB
     Indication: COLON CANCER
     Dosage: 160 MG, QD (FOR  21 DAYS THEN 7 DAYS BREAK. TAKE WHOLE WITH A LOW FAT BREAKFAST)
     Route: 048
     Dates: start: 201806
  4. BACLOFEN. [Concomitant]
     Active Substance: BACLOFEN

REACTIONS (13)
  - Dry mouth [Not Recovered/Not Resolved]
  - Neck pain [Not Recovered/Not Resolved]
  - Neuralgia [Not Recovered/Not Resolved]
  - Back pain [Not Recovered/Not Resolved]
  - Feeling hot [Not Recovered/Not Resolved]
  - Pyrexia [None]
  - Vision blurred [Not Recovered/Not Resolved]
  - Eating disorder [Not Recovered/Not Resolved]
  - Gait disturbance [Not Recovered/Not Resolved]
  - Chest pain [Not Recovered/Not Resolved]
  - Urticaria [None]
  - Palpitations [Not Recovered/Not Resolved]
  - Dyspnoea [Not Recovered/Not Resolved]
